FAERS Safety Report 4554802-1 (Version None)
Quarter: 2005Q1

REPORT INFORMATION
  Report Type: 
  Country: None (occurrence: None)
  Receive Date: 20050114
  Receipt Date: 20030718
  Transmission Date: 20050727
  Serious: Yes (Hospitalization)
  Sender: FDA-Public Use
  Company Number: PHFR2003GB02848

PATIENT
  Age: 68 Year
  Sex: Male

DRUGS (3)
  1. CLOZARIL [Suspect]
     Indication: SCHIZOPHRENIA
     Dosage: 75 MG/DAY
     Dates: start: 19980923, end: 20030711
  2. LORAZEPAM [Suspect]
     Dosage: INTRAMUSCULAR
     Route: 030
  3. FLUID/ELECTROLYTE REPLACEMENT THERAPY (FLUID/ELECTROLYTE REPLACEMENT T [Suspect]

REACTIONS (6)
  - BLOOD CREATINE PHOSPHOKINASE INCREASED [None]
  - BLOOD SODIUM INCREASED [None]
  - BLOOD UREA INCREASED [None]
  - DEHYDRATION [None]
  - NEUROLEPTIC MALIGNANT SYNDROME [None]
  - URINARY TRACT INFECTION [None]
